FAERS Safety Report 9441047 (Version 2)
Quarter: 2013Q3

REPORT INFORMATION
  Report Type: Spontaneous
  Country: US (occurrence: US)
  Receive Date: 20130805
  Receipt Date: 20130827
  Transmission Date: 20140515
  Serious: Yes (Hospitalization)
  Sender: FDA-Public Use
  Company Number: US-JNJFOC-20130715723

PATIENT
  Age: 16 Year
  Sex: Female

DRUGS (5)
  1. METHYLPHENIDATE HYDROCHLORIDE [Suspect]
     Indication: ATTENTION DEFICIT/HYPERACTIVITY DISORDER
     Route: 048
  2. SERTRALINE [Suspect]
     Indication: DRUG THERAPY
     Route: 065
  3. ELETRIPTAN [Suspect]
     Indication: MIGRAINE
     Route: 065
  4. LITHIUM [Concomitant]
     Indication: DRUG THERAPY
     Route: 065
  5. ARIPIPRAZOLE [Concomitant]
     Indication: DRUG THERAPY
     Route: 065

REACTIONS (1)
  - Cerebral vasoconstriction [Recovered/Resolved]
